FAERS Safety Report 7287041-4 (Version None)
Quarter: 2011Q1

REPORT INFORMATION
  Report Type: 
  Country: None (occurrence: None)
  Receive Date: 20110211
  Receipt Date: 20110128
  Transmission Date: 20110831
  Serious: No
  Sender: FDA-Public Use
  Company Number: US-BIOGENIDEC-2011BI004321

PATIENT
  Age: 23 Year
  Sex: Female

DRUGS (1)
  1. TYSABRI [Suspect]
     Indication: MULTIPLE SCLEROSIS
     Route: 042
     Dates: start: 20100813

REACTIONS (5)
  - VISUAL IMPAIRMENT [None]
  - DIZZINESS [None]
  - HEADACHE [None]
  - COGNITIVE DISORDER [None]
  - FATIGUE [None]
